FAERS Safety Report 4472548-5 (Version None)
Quarter: 2004Q4

REPORT INFORMATION
  Report Type: 
  Country: None (occurrence: None)
  Receive Date: 20041008
  Receipt Date: 20040930
  Transmission Date: 20050328
  Serious: Yes (Hospitalization, Other)
  Sender: FDA-Public Use
  Company Number: 702106

PATIENT
  Age: 31 Year
  Sex: Male

DRUGS (1)
  1. AMEVIVE [Suspect]
     Dosage: 15 MG QW IM
     Route: 030
     Dates: start: 20040501, end: 20040614

REACTIONS (30)
  - ABDOMINAL DISCOMFORT [None]
  - ALPHA 1 FOETOPROTEIN INCREASED [None]
  - ANAEMIA [None]
  - BLADDER MASS [None]
  - CONSTIPATION [None]
  - DEEP VEIN THROMBOSIS [None]
  - DEPRESSION [None]
  - DYSURIA [None]
  - EPIDIDYMAL CYST [None]
  - FEBRILE NEUTROPENIA [None]
  - FIBRIN D DIMER INCREASED [None]
  - HAEMATOCRIT DECREASED [None]
  - HYDROURETER [None]
  - LYMPHADENOPATHY [None]
  - MARKEDLY REDUCED DIETARY INTAKE [None]
  - MICROLITHIASIS [None]
  - MUSCLE STRAIN [None]
  - NAUSEA [None]
  - OEDEMA PERIPHERAL [None]
  - PAIN IN EXTREMITY [None]
  - PARANEOPLASTIC SYNDROME [None]
  - PROSTATITIS [None]
  - PULMONARY EMBOLISM [None]
  - RENAL HYPERTROPHY [None]
  - SEMINOMA [None]
  - TESTICULAR DISORDER [None]
  - THROMBOSIS [None]
  - URINARY TRACT INFECTION [None]
  - VARICOCELE [None]
  - VENA CAVA THROMBOSIS [None]
